FAERS Safety Report 6642117-7 (Version None)
Quarter: 2010Q1

REPORT INFORMATION
  Report Type: 
  Country: None (occurrence: None)
  Receive Date: 20100319
  Receipt Date: 20100308
  Transmission Date: 20100710
  Serious: Yes (Other)
  Sender: FDA-Public Use
  Company Number: US-BRISTOL-MYERS SQUIBB COMPANY-15009681

PATIENT
  Sex: Female

DRUGS (4)
  1. ABILIFY [Suspect]
     Indication: BIPOLAR DISORDER
  2. ABILIFY [Suspect]
     Indication: BIPOLAR I DISORDER
  3. LITHIUM [Suspect]
     Indication: BIPOLAR DISORDER
  4. LITHIUM [Suspect]
     Indication: BIPOLAR I DISORDER

REACTIONS (2)
  - RESTLESS LEGS SYNDROME [None]
  - THYROID MASS [None]
